FAERS Safety Report 5921791-4 (Version None)
Quarter: 2008Q4

REPORT INFORMATION
  Report Type: 
  Country: None (occurrence: None)
  Receive Date: 20081017
  Receipt Date: 20081010
  Transmission Date: 20090506
  Serious: Yes (Hospitalization)
  Sender: FDA-Public Use
  Company Number: US-JNJFOC-20081002897

PATIENT
  Sex: Female
  Weight: 52.16 kg

DRUGS (2)
  1. TYLOX [Suspect]
     Indication: SCIATICA
     Dosage: 10/1000MG (2X 5/500MG) EVERY 4-6 HOURS
     Route: 048
  2. SYNTHROID [Concomitant]
     Dosage: ^0.137^
     Route: 048

REACTIONS (6)
  - DRUG EFFECT DECREASED [None]
  - DRUG EXPOSURE DURING PREGNANCY [None]
  - DRUG INEFFECTIVE [None]
  - DYSPHAGIA [None]
  - THYROID CANCER [None]
  - WRONG TECHNIQUE IN DRUG USAGE PROCESS [None]
